FAERS Safety Report 10301372 (Version 6)
Quarter: 2020Q3

REPORT INFORMATION
  Report Type: Report from Study
  Country: FR (occurrence: FR)
  Receive Date: 20140714
  Receipt Date: 20141126
  Transmission Date: 20201104
  Serious: Yes (Hospitalization, Other)
  Sender: FDA-Public Use
  Company Number: FR-JNJFOC-20140704245

PATIENT
  Age: 80 Year
  Sex: Male
  Weight: 70 kg

DRUGS (5)
  1. IBRUTINIB [Suspect]
     Active Substance: IBRUTINIB
     Indication: CHRONIC LYMPHOCYTIC LEUKAEMIA
     Dates: start: 20140522, end: 20140915
  2. MICARDIS [Concomitant]
     Active Substance: TELMISARTAN
     Indication: HYPERTENSION
     Dates: start: 20130815
  3. EPOETIN BETA [Concomitant]
     Active Substance: ERYTHROPOIETIN
     Indication: ANAEMIA
     Dosage: 30000 UNITS PER WEEK
     Dates: start: 20140619
  4. IBRUTINIB [Suspect]
     Active Substance: IBRUTINIB
  5. ALPRAZOLAM. [Concomitant]
     Active Substance: ALPRAZOLAM
     Indication: ANXIETY
     Dates: start: 20140215

REACTIONS (6)
  - Atrioventricular block [Unknown]
  - Haemoglobin decreased [Not Recovered/Not Resolved]
  - Device loosening [Unknown]
  - White blood cell count increased [Not Recovered/Not Resolved]
  - Platelet count decreased [Recovering/Resolving]
  - Lymphocyte count increased [Not Recovered/Not Resolved]

NARRATIVE: CASE EVENT DATE: 20140617
